FAERS Safety Report 12221295 (Version 1)
Quarter: 2016Q1

REPORT INFORMATION
  Report Type: Spontaneous
  Country: US (occurrence: US)
  Receive Date: 20160330
  Receipt Date: 20160330
  Transmission Date: 20160526
  Serious: No
  Sender: FDA-Public Use
  Company Number: US-MYLANLABS-2015M1026974

PATIENT
  Sex: Female

DRUGS (2)
  1. ESTRADIOL TRANSDERMAL SYSTEM [Suspect]
     Active Substance: ESTRADIOL
     Indication: VULVOVAGINAL BURNING SENSATION
     Dosage: 0.025 MG, QD
     Route: 062
     Dates: start: 20150806
  2. ESTRADIOL TRANSDERMAL SYSTEM [Suspect]
     Active Substance: ESTRADIOL
     Indication: HORMONE REPLACEMENT THERAPY

REACTIONS (1)
  - Feeling hot [Not Recovered/Not Resolved]

NARRATIVE: CASE EVENT DATE: 20150806
